FAERS Safety Report 5060430-4 (Version None)
Quarter: 2006Q2

REPORT INFORMATION
  Report Type: 
  Country: None (occurrence: None)
  Receive Date: 20060630
  Receipt Date: 20060306
  Transmission Date: 20061013
  Serious: Yes (Other)
  Sender: FDA-Public Use
  Company Number: A03200601185

PATIENT
  Age: 75 Year
  Sex: Female

DRUGS (1)
  1. AMBIEN [Suspect]
     Indication: SOMNOLENCE
     Dosage: ORAL
     Route: 048
     Dates: start: 20060209, end: 20060101

REACTIONS (6)
  - DIZZINESS [None]
  - DRUG INEFFECTIVE [None]
  - HALLUCINATION [None]
  - NIGHTMARE [None]
  - PHOBIA [None]
  - SOMNOLENCE [None]
